FAERS Safety Report 16161486 (Version 1)
Quarter: 2019Q2

REPORT INFORMATION
  Report Type: Spontaneous
  Country: CH (occurrence: CH)
  Receive Date: 20190405
  Receipt Date: 20190405
  Transmission Date: 20190711
  Serious: Yes (Other)
  Sender: FDA-Public Use
  Company Number: CH-ALKEM LABORATORIES LIMITED-CH-ALKEM-2019-01677

PATIENT
  Age: 35 Year
  Sex: Male

DRUGS (1)
  1. ITRACONAZOLE. [Suspect]
     Active Substance: ITRACONAZOLE
     Indication: MYCETOMA MYCOTIC
     Dosage: 400 MG, OD
     Route: 048

REACTIONS (1)
  - Drug ineffective [Unknown]
